FAERS Safety Report 5016854-4 (Version None)
Quarter: 2006Q2

REPORT INFORMATION
  Report Type: 
  Country: None (occurrence: None)
  Receive Date: 20060526
  Receipt Date: 20060512
  Transmission Date: 20061013
  Serious: Yes (Hospitalization)
  Sender: FDA-Public Use
  Company Number: 2006RL000171

PATIENT
  Sex: Female

DRUGS (3)
  1. PROPAFENONE HCL [Suspect]
     Indication: ATRIAL FIBRILLATION
     Dosage: 150; 300 MG; BID; PO
     Route: 048
     Dates: start: 20060502, end: 20060503
  2. PROPAFENONE HCL [Suspect]
     Indication: ATRIAL FIBRILLATION
     Dosage: 150; 300 MG; BID; PO
     Route: 048
     Dates: start: 20060503, end: 20060508
  3. FLECAINIDE ACETATE [Concomitant]

REACTIONS (4)
  - DIFFICULTY IN WALKING [None]
  - DIZZINESS [None]
  - HEART RATE IRREGULAR [None]
  - MALAISE [None]
